FAERS Safety Report 9414912 (Version 1)
Quarter: 2013Q3

REPORT INFORMATION
  Report Type: Spontaneous
  Country: IL (occurrence: IL)
  Receive Date: 20130723
  Receipt Date: 20130723
  Transmission Date: 20140515
  Serious: Yes (Death, Other)
  Sender: FDA-Public Use
  Company Number: IL-BAXTER-2013BAX027749

PATIENT
  Age: 23 Year
  Sex: Male

DRUGS (2)
  1. ENDOXAN-1G [Suspect]
     Indication: ANTI-NEUTROPHIL CYTOPLASMIC ANTIBODY POSITIVE VASCULITIS
     Dosage: PULSES
  2. PREDNISONE [Concomitant]
     Indication: ANTI-NEUTROPHIL CYTOPLASMIC ANTIBODY POSITIVE VASCULITIS

REACTIONS (9)
  - Multi-organ failure [Fatal]
  - Shock [Fatal]
  - Disseminated intravascular coagulation [Unknown]
  - Varicella [Unknown]
  - Staphylococcus test positive [Unknown]
  - Thrombocytopenia [Unknown]
  - Anaemia [Unknown]
  - Leukopenia [Unknown]
  - Hepatosplenomegaly [Unknown]
